FAERS Safety Report 5063511-4 (Version None)
Quarter: 2006Q3

REPORT INFORMATION
  Report Type: 
  Country: None (occurrence: None)
  Receive Date: 20060724
  Receipt Date: 20060706
  Transmission Date: 20061208
  Serious: Yes (Life-Threatening, Disabling)
  Sender: FDA-Public Use
  Company Number: 2006BI000059

PATIENT
  Age: 63 Year
  Sex: Female
  Weight: 74 kg

DRUGS (6)
  1. ZEVALIN [Suspect]
     Indication: BONE MARROW CONDITIONING REGIMEN
     Dosage: 0.4 MCI/KG;1X;IV
     Route: 042
     Dates: start: 20051201, end: 20051201
  2. RITUXIMAB [Concomitant]
  3. CARMUSTINE [Concomitant]
  4. ETOPOSIDE [Concomitant]
  5. CYTARABINE [Concomitant]
  6. MELPHALAN [Concomitant]

REACTIONS (34)
  - ANAEMIA [None]
  - APLASIA [None]
  - ASTHENIA [None]
  - BILIARY DILATATION [None]
  - BLOOD DISORDER [None]
  - C-REACTIVE PROTEIN INCREASED [None]
  - CARDIOMEGALY [None]
  - CHILLS [None]
  - COUGH [None]
  - DEPRESSED LEVEL OF CONSCIOUSNESS [None]
  - DERMATITIS [None]
  - FEBRILE NEUTROPENIA [None]
  - GALLBLADDER DISORDER [None]
  - GASTROINTESTINAL DISORDER [None]
  - HEPATIC LESION [None]
  - HYPOREFLEXIA [None]
  - HYPOTENSION [None]
  - INFECTION [None]
  - MUCOSAL INFLAMMATION [None]
  - MUSCLE DISORDER [None]
  - MYOPATHY [None]
  - OBSTRUCTIVE AIRWAYS DISORDER [None]
  - PERICARDIAL EFFUSION [None]
  - PLEURAL EFFUSION [None]
  - POLYNEUROPATHY [None]
  - PULMONARY HYPERTENSION [None]
  - PULMONARY TOXICITY [None]
  - QUADRIPLEGIA [None]
  - SKIN DISORDER [None]
  - SKIN EXFOLIATION [None]
  - SKIN TOXICITY [None]
  - STEM CELL TRANSPLANT [None]
  - THROMBOCYTOPENIA [None]
  - WHITE BLOOD CELL COUNT DECREASED [None]
